FAERS Safety Report 12646174 (Version 1)
Quarter: 2016Q3

REPORT INFORMATION
  Report Type: Spontaneous
  Country: JP (occurrence: JP)
  Receive Date: 20160811
  Receipt Date: 20160811
  Transmission Date: 20161109
  Serious: Yes (Other)
  Sender: FDA-Public Use
  Company Number: JP-MYLANLABS-2014M1002381

PATIENT

DRUGS (3)
  1. FLUOROURACIL. [Suspect]
     Active Substance: FLUOROURACIL
     Indication: ADENOCARCINOMA
     Dosage: 1000 MG/M2 ON DAYS 1-5 EVERY 4 WEEKS
     Route: 065
  2. DOCETAXEL. [Suspect]
     Active Substance: DOCETAXEL
     Indication: ADENOCARCINOMA
     Dosage: 75 MG/M2 ON DAY 2 EVERY 4 WEEKS
     Route: 065
  3. CISPLATIN MYLAN [Suspect]
     Active Substance: CISPLATIN
     Indication: ADENOCARCINOMA
     Dosage: 100 MG/M2 ON DAY 2 EVERY 4 WEEKS
     Route: 065

REACTIONS (3)
  - Skin disorder [Recovered/Resolved]
  - Bone marrow failure [Recovered/Resolved]
  - Decreased appetite [None]
